FAERS Safety Report 8109135 (Version 2)
Quarter: 2013Q4

REPORT INFORMATION
  Report Type: Spontaneous
  Country: US (occurrence: US)
  Receive Date: 20110826
  Receipt Date: 20131122
  Transmission Date: 20140711
  Serious: Yes (Other)
  Sender: FDA-Public Use
  Company Number: US-BAYER-2011-075042

PATIENT
  Age: 19 Year
  Sex: Female

DRUGS (7)
  1. YAZ [Suspect]
     Indication: PRODUCT USED FOR UNKNOWN INDICATION
  2. YASMIN [Suspect]
     Indication: PRODUCT USED FOR UNKNOWN INDICATION
  3. DICYCLOMINE [Concomitant]
     Dosage: 10 MG, UNK
  4. NEXIUM [Concomitant]
     Dosage: UNK
     Dates: start: 20090217
  5. CYMBALTA [Concomitant]
     Dosage: 30 MG, UNK
     Dates: start: 20090217
  6. SEROQUEL [Concomitant]
     Dosage: UNK
     Dates: start: 20090217
  7. LITHIUM [Concomitant]
     Dosage: 150 MG, UNK

REACTIONS (4)
  - Gallbladder injury [Unknown]
  - Injury [Unknown]
  - Pain [Unknown]
  - Cholecystitis [None]
